FAERS Safety Report 7275695-8 (Version None)
Quarter: 2011Q1

REPORT INFORMATION
  Report Type: 
  Country: None (occurrence: None)
  Receive Date: 20110202
  Receipt Date: 20110202
  Transmission Date: 20110831
  Serious: Yes (Hospitalization)
  Sender: FDA-Public Use
  Company Number: None

PATIENT
  Age: 73 Year
  Sex: Male
  Weight: 65.7716 kg

DRUGS (3)
  1. IRINOTECAN [Suspect]
     Indication: BILE DUCT CANCER
     Dosage: 100MG/M2 2 OUT OF 3 WEEKS IV DRIP 2 DOSES
     Route: 041
     Dates: start: 20110106, end: 20110120
  2. GEMCITABINE [Suspect]
     Indication: BILE DUCT CANCER
     Dosage: 1000MG/M2 2 OUT OF 3 WEEKS IV DRIP 2 DOSES
     Route: 041
     Dates: start: 20110106, end: 20110120
  3. PANITUMUMAB [Concomitant]

REACTIONS (7)
  - OEDEMA PERIPHERAL [None]
  - DYSPNOEA [None]
  - NERVOUS SYSTEM DISORDER [None]
  - EYE OEDEMA [None]
  - MENINGITIS [None]
  - INFECTION [None]
  - WHITE BLOOD CELL COUNT DECREASED [None]
